FAERS Safety Report 14963346 (Version 1)
Quarter: 2018Q2

REPORT INFORMATION
  Report Type: Spontaneous
  Country: GB (occurrence: GB)
  Receive Date: 20180601
  Receipt Date: 20180601
  Transmission Date: 20180711
  Serious: Yes (Hospitalization, Disabling)
  Sender: FDA-Public Use
  Company Number: GB-GUERBET-GB-20180086

PATIENT
  Age: 45 Year
  Sex: Female

DRUGS (2)
  1. OPTIRAY 300 [Suspect]
     Active Substance: IOVERSOL
     Indication: SCAN WITH CONTRAST
     Dosage: 75 (UNIT NOT SPECIFIED)
     Route: 065
  2. OPTIRAY 300 [Suspect]
     Active Substance: IOVERSOL
     Dosage: 75 ()

REACTIONS (3)
  - Rash generalised [Unknown]
  - Wheezing [Unknown]
  - Dyspnoea [Unknown]

NARRATIVE: CASE EVENT DATE: 20180328
